FAERS Safety Report 5312141-5 (Version None)
Quarter: 2007Q2

REPORT INFORMATION
  Report Type: 
  Country: None (occurrence: None)
  Receive Date: 20070430
  Receipt Date: 20060705
  Transmission Date: 20071010
  Serious: No
  Sender: FDA-Public Use
  Company Number: 2006UW13904

PATIENT
  Age: 88 Year
  Sex: Female

DRUGS (7)
  1. NEXIUM [Suspect]
     Indication: DRY THROAT
     Route: 048
  2. COUMADIN [Concomitant]
  3. COZAAR [Concomitant]
  4. TYLENOL [Concomitant]
  5. ZINC [Concomitant]
  6. DETROL [Concomitant]
  7. OXYTROL [Concomitant]

REACTIONS (3)
  - ARTHRITIS [None]
  - DRY THROAT [None]
  - FATIGUE [None]
